FAERS Safety Report 9043462 (Version 1)
Quarter: 2013Q1

REPORT INFORMATION
  Report Type: Report from Study
  Country: US (occurrence: US)
  Receive Date: 20130129
  Receipt Date: 20130129
  Transmission Date: 20140127
  Serious: No
  Sender: FDA-Public Use
  Company Number: US-ABBOTT-12P-163-0914446-00

PATIENT
  Age: 76 Year
  Sex: Female

DRUGS (12)
  1. HUMIRA 40 MG/0.8 ML PEN [Suspect]
     Indication: RHEUMATOID ARTHRITIS
     Dates: start: 20120301
  2. METHOTREXATE [Concomitant]
     Indication: PRODUCT USED FOR UNKNOWN INDICATION
     Dosage: 2.5 MG X 4 TABS WEEKLY (NOT TAKEN FOR 3 WKS DUE TO SORES IN MOUTH)
  3. FOSAMAX [Concomitant]
     Indication: OSTEOPOROSIS
  4. SYNTHROID [Concomitant]
     Indication: HYPOTHYROIDISM
     Dosage: 75 MCG EVERY DAY
  5. POTASSIUM PILL [Concomitant]
     Indication: HYPERTENSION
     Dosage: 8 MG EVERY DAY
  6. GENERIC PRILOSEC [Concomitant]
     Indication: GASTROOESOPHAGEAL REFLUX DISEASE
     Dosage: EVERY DAY
  7. PREVACID [Concomitant]
     Indication: GASTROOESOPHAGEAL REFLUX DISEASE
     Dosage: 10 MG EVERY DAY
  8. GENERIC PRAVACHOL [Concomitant]
     Indication: HYPERTENSION
  9. HCTZ [Concomitant]
     Indication: OEDEMA PERIPHERAL
     Dosage: 50 MG EVERY DAY
  10. HYDROXYZINE HCL [Concomitant]
     Indication: INSOMNIA
     Dosage: AT BEDTIME
  11. FOLIC ACID [Concomitant]
     Indication: PRODUCT USED FOR UNKNOWN INDICATION
  12. CALCIUM PILL [Concomitant]
     Indication: PRODUCT USED FOR UNKNOWN INDICATION

REACTIONS (3)
  - Injection site erythema [Recovering/Resolving]
  - Stomatitis [Recovering/Resolving]
  - Local swelling [Recovering/Resolving]
